FAERS Safety Report 16556365 (Version 1)
Quarter: 2019Q3

REPORT INFORMATION
  Report Type: Spontaneous
  Country: CH (occurrence: CH)
  Receive Date: 20190710
  Receipt Date: 20190710
  Transmission Date: 20191004
  Serious: Yes (Other)
  Sender: FDA-Public Use
  Company Number: CH-BAXTER-2019BAX013319

PATIENT
  Age: 31 Year
  Sex: Female

DRUGS (6)
  1. FILGRASTIM [Suspect]
     Active Substance: FILGRASTIM
     Indication: PRODUCT USED FOR UNKNOWN INDICATION
     Dosage: DAYS 6-11 AFTER IMMUNOCHEMOTHERAPY
     Route: 058
  2. RITUXIMAB. [Suspect]
     Active Substance: RITUXIMAB
     Indication: DIFFUSE LARGE B-CELL LYMPHOMA STAGE II
     Dosage: SIX CYCLES OF R-CHOP ON A 14 DAY SCHEDULE (ON DAYS 1-5)
     Route: 065
  3. DOXORUBICIN [Suspect]
     Active Substance: DOXORUBICIN
     Indication: DIFFUSE LARGE B-CELL LYMPHOMA STAGE II
     Dosage: SIX CYCLES OF R-CHOP ON A 14 DAY SCHEDULE (ON DAYS 1-5)
     Route: 065
  4. PREDNISONE. [Suspect]
     Active Substance: PREDNISONE
     Indication: DIFFUSE LARGE B-CELL LYMPHOMA STAGE II
     Dosage: SIX CYCLES OF R-CHOP ON A 14 DAY SCHEDULE (ON DAYS 1-5)
     Route: 065
  5. VINCRISTINE [Suspect]
     Active Substance: VINCRISTINE
     Indication: DIFFUSE LARGE B-CELL LYMPHOMA STAGE II
     Dosage: SIX CYCLES OF R-CHOP ON A 14 DAY SCHEDULE (ON DAYS 1-5)
     Route: 065
  6. ENDOXAN 1 G. TROCKENSUBSTANZ ZUR INTRAVEN?SEN INFUSION [Suspect]
     Active Substance: CYCLOPHOSPHAMIDE
     Indication: DIFFUSE LARGE B-CELL LYMPHOMA STAGE II
     Dosage: SIX CYCLES OF R-CHOP ON A 14 DAY SCHEDULE (ON DAYS 1-5)
     Route: 065

REACTIONS (4)
  - Nausea [Recovering/Resolving]
  - Vomiting [Recovering/Resolving]
  - Exposure during pregnancy [Recovered/Resolved]
  - Leukopenia [Recovered/Resolved]
